FAERS Safety Report 12192447 (Version 1)
Quarter: 2016Q1

REPORT INFORMATION
  Report Type: Spontaneous
  Country: US (occurrence: US)
  Receive Date: 20160318
  Receipt Date: 20160318
  Transmission Date: 20160526
  Serious: Yes (Other)
  Sender: FDA-Public Use
  Company Number: US-BRISTOL-MYERS SQUIBB COMPANY-BMS-2016-018328

PATIENT
  Sex: Female

DRUGS (1)
  1. ELIQUIS [Suspect]
     Active Substance: APIXABAN
     Indication: PRODUCT USED FOR UNKNOWN INDICATION
     Route: 065

REACTIONS (9)
  - Middle insomnia [Unknown]
  - Circadian rhythm sleep disorder [Unknown]
  - Product label issue [Unknown]
  - Disturbance in attention [Unknown]
  - Somnolence [Unknown]
  - Emotional distress [Unknown]
  - Visual impairment [Unknown]
  - Thrombosis [Unknown]
  - Fatigue [Unknown]
